FAERS Safety Report 6411989-3 (Version None)
Quarter: 2009Q4

REPORT INFORMATION
  Report Type: 
  Country: None (occurrence: None)
  Receive Date: 20091023
  Receipt Date: 20091019
  Transmission Date: 20100525
  Serious: Yes (Death)
  Sender: FDA-Public Use
  Company Number: RS-JNJFOC-20091002631

PATIENT
  Sex: Male

DRUGS (2)
  1. RISPOLEPT CONSTA [Suspect]
     Indication: SCHIZOID PERSONALITY DISORDER
     Route: 065
  2. RISPOLEPT [Suspect]
     Indication: SCHIZOID PERSONALITY DISORDER
     Route: 048

REACTIONS (3)
  - COMPLETED SUICIDE [None]
  - SCHIZOID PERSONALITY DISORDER [None]
  - TREATMENT NONCOMPLIANCE [None]
